FAERS Safety Report 9304523 (Version 1)
Quarter: 2013Q2

REPORT INFORMATION
  Report Type: Spontaneous
  Country: NL (occurrence: NL)
  Receive Date: 20130523
  Receipt Date: 20130523
  Transmission Date: 20140414
  Serious: Yes (Other)
  Sender: FDA-Public Use
  Company Number: NL-AMGEN-NLDSP2013034673

PATIENT
  Age: 71 Year
  Sex: Male

DRUGS (5)
  1. ENBREL [Suspect]
     Indication: ANKYLOSING SPONDYLITIS
     Dosage: 50 MG, WEEKLY
     Dates: start: 20130320
  2. ASCAL                              /00002702/ [Concomitant]
     Dosage: UNK
  3. APROVEL [Concomitant]
     Dosage: UNK
  4. LOSEC                              /00661201/ [Concomitant]
     Dosage: UNK
  5. DORMICUM                           /00036201/ [Concomitant]
     Dosage: UNK

REACTIONS (9)
  - Cystitis [Recovering/Resolving]
  - Prostate infection [Recovering/Resolving]
  - Malaise [Unknown]
  - Headache [Unknown]
  - Myalgia [Unknown]
  - Ocular hyperaemia [Unknown]
  - Oropharyngeal pain [Unknown]
  - Bone pain [Unknown]
  - Sensory disturbance [Unknown]
